FAERS Safety Report 5856265-2 (Version None)
Quarter: 2008Q3

REPORT INFORMATION
  Report Type: 
  Country: None (occurrence: None)
  Receive Date: 20080825
  Receipt Date: 20080708
  Transmission Date: 20090109
  Serious: Yes (Disabling)
  Sender: FDA-Public Use
  Company Number: B0519698A

PATIENT
  Age: 73 Year
  Sex: Female
  Weight: 55 kg

DRUGS (3)
  1. AUGMENTIN '125' [Suspect]
     Indication: BRONCHITIS
     Route: 048
     Dates: start: 20050101
  2. CHEMOTHERAPY [Concomitant]
     Indication: OVARIAN CANCER
     Route: 048
     Dates: start: 20070701, end: 20071101
  3. ACETAMINOPHEN [Concomitant]
     Indication: BRONCHITIS
     Route: 065
     Dates: start: 20050101

REACTIONS (5)
  - BURNING SENSATION [None]
  - NEURALGIA [None]
  - PARAESTHESIA [None]
  - RASH GENERALISED [None]
  - TEMPERATURE INTOLERANCE [None]
